FAERS Safety Report 4616905-2 (Version None)
Quarter: 2005Q1

REPORT INFORMATION
  Report Type: 
  Country: None (occurrence: None)
  Receive Date: 20050321
  Receipt Date: 20031203
  Transmission Date: 20050727
  Serious: Yes (Life-Threatening, Hospitalization)
  Sender: FDA-Public Use
  Company Number: 6813

PATIENT
  Age: 48 Year
  Sex: Male

DRUGS (5)
  1. PAMIDRONATE DISODIUM [Suspect]
     Dosage: 90 MG ONCE IV
     Route: 042
     Dates: start: 20031114, end: 20031114
  2. PARACETAMOL [Concomitant]
  3. RANITIDINE [Concomitant]
  4. OXYCODONE [Concomitant]
  5. CYCLIZINE [Concomitant]

REACTIONS (2)
  - CONFUSIONAL STATE [None]
  - HYPOCALCAEMIA [None]
